FAERS Safety Report 22390150 (Version 1)
Quarter: 2023Q2

REPORT INFORMATION
  Report Type: Spontaneous
  Country: AU (occurrence: AU)
  Receive Date: 20230531
  Receipt Date: 20230531
  Transmission Date: 20230722
  Serious: Yes (Life-Threatening, Hospitalization, Other)
  Sender: FDA-Public Use
  Company Number: AU-PFIZER INC-PV202300094617

PATIENT
  Age: 38 Year
  Sex: Female

DRUGS (2)
  1. ETHINYL ESTRADIOL\LEVONORGESTREL [Suspect]
     Active Substance: ETHINYL ESTRADIOL\LEVONORGESTREL
     Indication: Abnormal uterine bleeding
     Dosage: 50 MICROGRAM ETHINYLOESTRADIOL AND 250 MICROGRAM LEVONORGESTREL
  2. ETHINYL ESTRADIOL\LEVONORGESTREL [Suspect]
     Active Substance: ETHINYL ESTRADIOL\LEVONORGESTREL
     Dosage: 50 MICROGRAM ETHINYLOESTRADIOL  AND 200 MICROGRAM LEVONORGESTREL

REACTIONS (2)
  - Portal vein thrombosis [Recovered/Resolved]
  - Off label use [Unknown]
